FAERS Safety Report 21549168 (Version 1)
Quarter: 2022Q4

REPORT INFORMATION
  Report Type: Spontaneous
  Country: US (occurrence: US)
  Receive Date: 20221103
  Receipt Date: 20221103
  Transmission Date: 20230113
  Serious: No
  Sender: FDA-Public Use
  Company Number: US-MYOVANT SCIENCES GMBH-2022MYSCI0800722

PATIENT
  Age: 75 Year
  Sex: Male

DRUGS (6)
  1. ORGOVYX [Suspect]
     Active Substance: RELUGOLIX
     Indication: Prostate cancer stage IV
     Dosage: UNK
     Route: 065
     Dates: start: 20210621
  2. ZYTIGA [Suspect]
     Active Substance: ABIRATERONE ACETATE
     Indication: Prostate cancer stage IV
     Dosage: UNK
     Route: 065
     Dates: start: 202106, end: 20220625
  3. BUPROPION                          /00700502/ [Concomitant]
     Indication: Smoking cessation therapy
     Dosage: UNK
     Route: 065
  4. VITAMIN D                          /00107901/ [Concomitant]
     Indication: Vitamin supplementation
     Dosage: UNK
     Route: 048
  5. ZYRTEC                             /00884302/ [Concomitant]
     Indication: Product used for unknown indication
     Dosage: UNK
     Route: 048
  6. VITAMINS                           /00067501/ [Concomitant]
     Indication: Vitamin supplementation
     Route: 065

REACTIONS (9)
  - Vomiting [Not Recovered/Not Resolved]
  - Nausea [Not Recovered/Not Resolved]
  - Dizziness [Not Recovered/Not Resolved]
  - Arthralgia [Recovering/Resolving]
  - Myalgia [Recovering/Resolving]
  - Syncope [Not Recovered/Not Resolved]
  - Mydriasis [Unknown]
  - Hyperthermia [Unknown]
  - Therapy interrupted [Not Recovered/Not Resolved]

NARRATIVE: CASE EVENT DATE: 20220830
